FAERS Safety Report 18687274 (Version 1)
Quarter: 2020Q4

REPORT INFORMATION
  Report Type: Spontaneous
  Country: IT (occurrence: IT)
  Receive Date: 20201231
  Receipt Date: 20201231
  Transmission Date: 20210114
  Serious: Yes (Hospitalization)
  Sender: FDA-Public Use
  Company Number: IT-ACCORD-212934

PATIENT
  Age: 58 Year
  Sex: Male
  Weight: 83 kg

DRUGS (6)
  1. PANTOPRAZOLE [Concomitant]
     Active Substance: PANTOPRAZOLE
  2. SOLDESAM [Concomitant]
     Active Substance: DEXAMETHASONE
  3. CISPLATIN. [Suspect]
     Active Substance: CISPLATIN
     Indication: BILIARY NEOPLASM
     Route: 042
     Dates: start: 20200717
  4. ONDANSETRON [Concomitant]
     Active Substance: ONDANSETRON
  5. CARDIOASPIRIN [Concomitant]
     Active Substance: ASPIRIN
  6. GEMCITABINE/GEMCITABINE HYDROCHLORIDE [Suspect]
     Active Substance: GEMCITABINE\GEMCITABINE HYDROCHLORIDE
     Indication: BILIARY NEOPLASM
     Route: 042
     Dates: start: 20200717

REACTIONS (5)
  - Thrombocytopenia [Recovered/Resolved]
  - Off label use [Unknown]
  - Haematemesis [Recovered/Resolved]
  - Anaemia [Recovered/Resolved]
  - Thrombosis [Recovered/Resolved]

NARRATIVE: CASE EVENT DATE: 20201026
